FAERS Safety Report 25952120 (Version 1)
Quarter: 2025Q4

REPORT INFORMATION
  Report Type: Spontaneous
  Country: US (occurrence: US)
  Receive Date: 20251023
  Receipt Date: 20251023
  Transmission Date: 20260118
  Serious: Yes (Life-Threatening, Hospitalization, Other)
  Sender: DR REDDYS
  Company Number: US-DRL-USA-USA/2025/10/015981

PATIENT
  Age: 33 Year
  Sex: Female

DRUGS (4)
  1. LAMOTRIGINE [Suspect]
     Active Substance: LAMOTRIGINE
     Indication: Epilepsy
     Dosage: GENERIC
  2. LAMOTRIGINE [Suspect]
     Active Substance: LAMOTRIGINE
  3. LAMOTRIGINE [Concomitant]
     Active Substance: LAMOTRIGINE
     Indication: Epilepsy
     Dosage: BRAND
  4. LACOSAMIDE [Concomitant]
     Active Substance: LACOSAMIDE
     Indication: Epilepsy

REACTIONS (1)
  - Suicide attempt [Unknown]
